FAERS Safety Report 18531010 (Version 1)
Quarter: 2020Q4

REPORT INFORMATION
  Report Type: Spontaneous
  Country: IT (occurrence: IT)
  Receive Date: 20201122
  Receipt Date: 20201122
  Transmission Date: 20210114
  Serious: Yes (Other)
  Sender: FDA-Public Use
  Company Number: IT-LUPIN PHARMACEUTICALS INC.-2020-09189

PATIENT

DRUGS (4)
  1. SARILUMAB [Concomitant]
     Active Substance: SARILUMAB
     Indication: COVID-19 PNEUMONIA
     Dosage: 400 MILLIGRAM (PATIENT RECEIVED A SINGLE INTRAVENOUS INFUSION OF SARILUMAB 400 MG; TWO SINGLE-DOSE P
     Route: 042
     Dates: start: 2020
  2. LOPINAVIR/RITONAVIR [Concomitant]
     Active Substance: LOPINAVIR\RITONAVIR
     Indication: COVID-19 PNEUMONIA
     Dosage: 1 DOSAGE FORM, BID (400/100 MG TWICE DAILY)
     Route: 048
     Dates: start: 2020
  3. HYDROXYCHLOROQUINE [Suspect]
     Active Substance: HYDROXYCHLOROQUINE
     Indication: COVID-19 PNEUMONIA
     Dosage: 200 MILLIGRAM, BID
     Route: 048
     Dates: start: 2020
  4. SODIUM CHLORIDE. [Concomitant]
     Active Substance: SODIUM CHLORIDE
     Indication: VEHICLE SOLUTION USE
     Dosage: TWO SINGLE-DOSE PREFILLED SYRINGES, EACH CONTAINING SARILUMAB, WERE ADDED TO 100 ML 0.9% SODIUM CHLO
     Route: 042
     Dates: start: 2020

REACTIONS (1)
  - Off label use [Unknown]

NARRATIVE: CASE EVENT DATE: 2020
